FAERS Safety Report 21122411 (Version 1)
Quarter: 2022Q3

REPORT INFORMATION
  Report Type: Other
  Country: JP (occurrence: None)
  Receive Date: 20220723
  Receipt Date: 20220723
  Transmission Date: 20221026
  Serious: Yes (Other)
  Sender: FDA-Public Use
  Company Number: JP-Square-000081

PATIENT
  Age: 79 Year
  Sex: Female

DRUGS (3)
  1. ACYCLOVIR [Suspect]
     Active Substance: ACYCLOVIR
     Indication: Product used for unknown indication
     Dosage: 250 MG/DAY SYSTEMICALLY
  2. PREDNISOLONE [Suspect]
     Active Substance: PREDNISOLONE
     Indication: Product used for unknown indication
     Dosage: 20 MG/DAY SYSTEMICALLY
  3. BETAMETHASONE [Suspect]
     Active Substance: BETAMETHASONE
     Indication: Product used for unknown indication
     Dosage: ADMINISTERED LOCALLY

REACTIONS (5)
  - Necrotising retinitis [Not Recovered/Not Resolved]
  - Disease progression [Not Recovered/Not Resolved]
  - Necrotising herpetic retinopathy [Not Recovered/Not Resolved]
  - Birdshot chorioretinopathy [Not Recovered/Not Resolved]
  - Treatment failure [Not Recovered/Not Resolved]
